FAERS Safety Report 17392784 (Version 2)
Quarter: 2020Q1

REPORT INFORMATION
  Report Type: Spontaneous
  Country: UG (occurrence: UG)
  Receive Date: 20200207
  Receipt Date: 20200219
  Transmission Date: 20200409
  Serious: Yes (Other)
  Sender: FDA-Public Use
  Company Number: UG-VIIV HEALTHCARE LIMITED-UG2020EME020445

PATIENT
  Age: 54 Year
  Sex: Female

DRUGS (1)
  1. DOLUTEGRAVIR [Suspect]
     Active Substance: DOLUTEGRAVIR
     Indication: PRODUCT USED FOR UNKNOWN INDICATION
     Dosage: UNK
     Dates: start: 20190101

REACTIONS (10)
  - Gallbladder enlargement [Unknown]
  - Ascites [Unknown]
  - Pelvic fluid collection [Unknown]
  - Drug-induced liver injury [Unknown]
  - Hepatic cirrhosis [Unknown]
  - Ocular icterus [Unknown]
  - Intra-abdominal fluid collection [Unknown]
  - Gallbladder disorder [Unknown]
  - Hepatic fibrosis [Unknown]
  - Ultrasound liver abnormal [Unknown]
